FAERS Safety Report 8503797-4 (Version None)
Quarter: 2012Q3

REPORT INFORMATION
  Report Type: 
  Country: None (occurrence: None)
  Receive Date: 20120711
  Receipt Date: 20120703
  Transmission Date: 20120928
  Serious: Yes (Hospitalization)
  Sender: FDA-Public Use
  Company Number: FR-BRISTOL-MYERS SQUIBB COMPANY-16738544

PATIENT
  Age: 61 Year
  Sex: Female

DRUGS (14)
  1. REPAGLINIDE [Concomitant]
  2. ARANESP [Suspect]
  3. SPIRIVA [Concomitant]
  4. ABILIFY [Suspect]
     Route: 048
  5. HALDOL [Suspect]
     Route: 048
  6. BICARBONATE [Concomitant]
  7. OMEPRAZOLE [Concomitant]
  8. BRONCHODUAL [Concomitant]
  9. AMLODIPINE BESYLATE [Concomitant]
  10. RENAGEL [Concomitant]
  11. QUETIAPINE [Suspect]
     Route: 048
  12. ASPIRIN [Concomitant]
  13. IRBESARTAN [Concomitant]
  14. LASIX [Concomitant]

REACTIONS (1)
  - PULMONARY EMBOLISM [None]
